FAERS Safety Report 15172498 (Version 3)
Quarter: 2018Q3

REPORT INFORMATION
  Report Type: Spontaneous
  Country: ES (occurrence: ES)
  Receive Date: 20180720
  Receipt Date: 20180809
  Transmission Date: 20181010
  Serious: Yes (Death)
  Sender: FDA-Public Use
  Company Number: ES-JNJFOC-20180722171

PATIENT
  Sex: Male
  Weight: 100 kg

DRUGS (8)
  1. CABERGOLINA [Concomitant]
     Active Substance: CABERGOLINE
     Route: 048
     Dates: start: 20150225
  2. ENALAPRIL [Concomitant]
     Active Substance: ENALAPRIL
     Route: 048
     Dates: start: 20150430
  3. WAL PROFEN COLD AND SINUS [Concomitant]
     Active Substance: IBUPROFEN\PSEUDOEPHEDRINE HYDROCHLORIDE
     Route: 048
     Dates: start: 20160630
  4. CALCIPOTRIOL [Concomitant]
     Active Substance: CALCIPOTRIENE
     Route: 061
     Dates: start: 20150430
  5. PREDNISONE. [Concomitant]
     Active Substance: PREDNISONE
     Route: 048
     Dates: start: 20160917
  6. LAMIVUDINE. [Concomitant]
     Active Substance: LAMIVUDINE
     Route: 048
     Dates: start: 201611
  7. STELARA [Suspect]
     Active Substance: USTEKINUMAB
     Indication: PSORIATIC ARTHROPATHY
     Dosage: TOTAL NUMBER OF INJECTIONS PATIENT RECEIVED 3.
     Route: 058
     Dates: start: 20170510
  8. OMEPRAZOLE. [Concomitant]
     Active Substance: OMEPRAZOLE
     Route: 048
     Dates: start: 20160316

REACTIONS (5)
  - Aortic aneurysm [Fatal]
  - Cardio-respiratory arrest [Fatal]
  - Hypertensive crisis [Fatal]
  - Myocardial infarction [Fatal]
  - Loss of consciousness [Unknown]

NARRATIVE: CASE EVENT DATE: 2017
